FAERS Safety Report 6214958-1 (Version None)
Quarter: 2009Q2

REPORT INFORMATION
  Report Type: 
  Country: None (occurrence: None)
  Receive Date: 20090604
  Receipt Date: 20090601
  Transmission Date: 20091009
  Serious: Yes (Disabling)
  Sender: FDA-Public Use
  Company Number: US-MERCK-0905USA04037

PATIENT
  Age: 75 Year
  Sex: Male

DRUGS (6)
  1. JANUVIA [Suspect]
     Route: 048
     Dates: start: 20090428
  2. LIPITOR [Concomitant]
     Route: 065
  3. DIOVAN [Concomitant]
     Route: 065
  4. COUMADIN [Concomitant]
     Route: 065
  5. METOPROLOL [Concomitant]
     Route: 065
  6. DIGOXIN [Concomitant]
     Route: 065

REACTIONS (2)
  - ARTHRITIS [None]
  - INTERVERTEBRAL DISC DEGENERATION [None]
